FAERS Safety Report 5541648-0 (Version None)
Quarter: 2007Q4

REPORT INFORMATION
  Report Type: 
  Country: None (occurrence: None)
  Receive Date: 20071206
  Receipt Date: 20071206
  Transmission Date: 20080405
  Serious: Yes (Hospitalization)
  Sender: FDA-Public Use
  Company Number: None

PATIENT
  Age: 29 Year
  Sex: Female
  Weight: 57.1532 kg

DRUGS (1)
  1. MEFENAMIC ACID [Suspect]
     Indication: ENDOMETRIOSIS
     Dosage: 2 CAPSULES  1 TIME  PO;  1 CAPSULE  EVERY 6 HOURS PO
     Route: 048
     Dates: start: 20071202, end: 20071204

REACTIONS (2)
  - DRUG HYPERSENSITIVITY [None]
  - STEVENS-JOHNSON SYNDROME [None]
